FAERS Safety Report 23336783 (Version 1)
Quarter: 2023Q4

REPORT INFORMATION
  Report Type: Spontaneous
  Country: IT (occurrence: IT)
  Receive Date: 20231226
  Receipt Date: 20231226
  Transmission Date: 20240110
  Serious: Yes (Hospitalization, Other)
  Sender: FDA-Public Use
  Company Number: IT-MINISAL02-957088

PATIENT
  Age: 63 Year
  Sex: Female
  Weight: 80 kg

DRUGS (1)
  1. AMOXICILLIN\CLAVULANIC ACID [Suspect]
     Active Substance: AMOXICILLIN\CLAVULANIC ACID
     Indication: Infection
     Dosage: 1 DOSAGE FORM
     Route: 048
     Dates: start: 20210505

REACTIONS (2)
  - Hypertensive crisis [Recovered/Resolved with Sequelae]
  - Erythema [Recovered/Resolved with Sequelae]

NARRATIVE: CASE EVENT DATE: 20210505
